FAERS Safety Report 4769050-X (Version None)
Quarter: 2005Q3

REPORT INFORMATION
  Report Type: 
  Country: None (occurrence: None)
  Receive Date: 20050913
  Receipt Date: 20050902
  Transmission Date: 20060218
  Serious: Yes (Life-Threatening)
  Sender: FDA-Public Use
  Company Number: 2005124410

PATIENT
  Age: 37 Year
  Sex: Female
  Weight: 63 kg

DRUGS (5)
  1. DEPO-PROVERA [Suspect]
     Indication: CONTRACEPTION
     Dosage: 150 MG (150 MG, 1ST INJECTION), INTRAMUSCULAR
     Route: 030
     Dates: start: 20050201, end: 20050201
  2. DEPO-PROVERA [Suspect]
     Indication: CONTRACEPTION
     Dosage: 150 MG (150 MG, 1ST INJECTION), INTRAMUSCULAR
     Route: 030
     Dates: start: 20050201, end: 20050201
  3. FLUOXETINE [Suspect]
     Indication: DEPRESSION
     Dosage: 20 MG(20 MG), ORAL
     Route: 048
     Dates: start: 20050317, end: 20050427
  4. IRON (IRON) [Concomitant]
  5. MULTIVITAMIN [Concomitant]

REACTIONS (2)
  - ERYTHEMA MULTIFORME [None]
  - PEMPHIGOID [None]
